FAERS Safety Report 7620447-X (Version None)
Quarter: 2011Q3

REPORT INFORMATION
  Report Type: 
  Country: None (occurrence: None)
  Receive Date: 20110719
  Receipt Date: 20110705
  Transmission Date: 20111222
  Serious: Yes (Other)
  Sender: FDA-Public Use
  Company Number: PHHY2011FR60786

PATIENT
  Age: 73 Year
  Sex: Male

DRUGS (4)
  1. AFINITOR [Suspect]
     Dosage: 5 MG, DAILY
     Route: 048
     Dates: start: 20110606
  2. AFINITOR [Suspect]
     Indication: RENAL CANCER METASTATIC
     Dosage: 10 MG DAILY
     Route: 048
     Dates: start: 20110502, end: 20110701
  3. PREVISCAN [Concomitant]
  4. CORDARONE [Concomitant]

REACTIONS (6)
  - MUCOSAL INFLAMMATION [None]
  - APHTHOUS STOMATITIS [None]
  - TOXIC SKIN ERUPTION [None]
  - OEDEMA PERIPHERAL [None]
  - ECZEMA INFECTED [None]
  - FUNGAL INFECTION [None]
